FAERS Safety Report 7812967-X (Version None)
Quarter: 2011Q4

REPORT INFORMATION
  Report Type: 
  Country: None (occurrence: None)
  Receive Date: 20111013
  Receipt Date: 20111011
  Transmission Date: 20120403
  Serious: Yes (Hospitalization)
  Sender: FDA-Public Use
  Company Number: DE-ABBOTT-11P-062-0855909-00

PATIENT
  Age: 34 Year
  Sex: Male
  Weight: 74 kg

DRUGS (1)
  1. HUMIRA [Suspect]
     Indication: CROHN'S DISEASE
     Dates: start: 20100927, end: 20101123

REACTIONS (5)
  - PYREXIA [None]
  - INFLAMMATORY PAIN [None]
  - THROMBOSIS [None]
  - CROHN'S DISEASE [None]
  - PAIN [None]
